FAERS Safety Report 19625284 (Version 1)
Quarter: 2021Q3

REPORT INFORMATION
  Report Type: Spontaneous
  Country: AU (occurrence: AU)
  Receive Date: 20210729
  Receipt Date: 20210729
  Transmission Date: 20211014
  Serious: Yes (Hospitalization)
  Sender: FDA-Public Use
  Company Number: AU-JNJFOC-20210744054

PATIENT

DRUGS (1)
  1. STELARA [Suspect]
     Active Substance: USTEKINUMAB
     Indication: CROHN^S DISEASE
     Route: 058

REACTIONS (4)
  - Sepsis [Not Recovered/Not Resolved]
  - Multiple organ dysfunction syndrome [Not Recovered/Not Resolved]
  - Cholecystitis [Not Recovered/Not Resolved]
  - Amoebic colitis [Not Recovered/Not Resolved]
